FAERS Safety Report 25302329 (Version 1)
Quarter: 2025Q2

REPORT INFORMATION
  Report Type: Spontaneous
  Country: FR (occurrence: FR)
  Receive Date: 20250512
  Receipt Date: 20250512
  Transmission Date: 20250716
  Serious: Yes (Life-Threatening)
  Sender: MYLAN
  Company Number: FR-PFIZER INC-2005111560

PATIENT
  Age: 75 Year
  Sex: Female
  Weight: 45 kg

DRUGS (5)
  1. AMLODIPINE BESYLATE [Suspect]
     Active Substance: AMLODIPINE BESYLATE
     Indication: Ill-defined disorder
     Dosage: 5 MILLIGRAM, QD
     Dates: start: 20030101
  2. PREDNISONE [Suspect]
     Active Substance: PREDNISONE
     Indication: Ill-defined disorder
     Dosage: 5 MILLIGRAM, QD
     Dates: start: 20030101
  3. THALIDOMIDE [Suspect]
     Active Substance: THALIDOMIDE
     Indication: Ill-defined disorder
     Dosage: UNK UNK, QD
     Dates: start: 20050211
  4. ACTONEL [Suspect]
     Active Substance: RISEDRONATE SODIUM
     Indication: Ill-defined disorder
     Dosage: UNK UNK, QD
     Dates: start: 20030101
  5. CALCIUM\CHOLECALCIFEROL [Suspect]
     Active Substance: CALCIUM\CHOLECALCIFEROL
     Indication: Ill-defined disorder
     Dosage: 1 DOSE FORM, UNIT DOSE 1000 MG/880 IU
     Dates: start: 20030101

REACTIONS (1)
  - Phlebitis [Not Recovered/Not Resolved]

NARRATIVE: CASE EVENT DATE: 20050630
